FAERS Safety Report 12530140 (Version 1)
Quarter: 2016Q3

REPORT INFORMATION
  Report Type: Spontaneous
  Country: US (occurrence: None)
  Receive Date: 20160705
  Receipt Date: 20160705
  Transmission Date: 20161109
  Serious: Yes (Other)
  Sender: FDA-Public Use
  Company Number: None

PATIENT
  Age: 55 Year
  Sex: Female
  Weight: 87.54 kg

DRUGS (12)
  1. TOPIRAMATE. [Concomitant]
     Active Substance: TOPIRAMATE
  2. OMEPRAZOL [Concomitant]
     Active Substance: OMEPRAZOLE
  3. ATENOLOL. [Concomitant]
     Active Substance: ATENOLOL
  4. MELOXICAM. [Concomitant]
     Active Substance: MELOXICAM
  5. PERCOCET [Concomitant]
     Active Substance: ACETAMINOPHEN\OXYCODONE HYDROCHLORIDE
  6. MORPHINE [Concomitant]
     Active Substance: MORPHINE
  7. VITAMIN D3 [Concomitant]
     Active Substance: CHOLECALCIFEROL
  8. MIRTAZAPINE. [Concomitant]
     Active Substance: MIRTAZAPINE
  9. LEVOTHYROXIN [Concomitant]
     Active Substance: LEVOTHYROXINE
  10. SIMVASTATIN, 20 MG [Suspect]
     Active Substance: SIMVASTATIN
     Indication: BLOOD CHOLESTEROL INCREASED
     Dosage: 30 TABLETS ONCE A DAY TAKEN BY MOUTH
     Route: 048
     Dates: start: 20151019, end: 20151218
  11. AMITRIPTYLIN [Concomitant]
     Active Substance: AMITRIPTYLINE
  12. LIDOCAINE. [Concomitant]
     Active Substance: LIDOCAINE

REACTIONS (12)
  - Condition aggravated [None]
  - Malaise [None]
  - Lip exfoliation [None]
  - Fatigue [None]
  - Headache [None]
  - Insomnia [None]
  - Burning sensation [None]
  - Back pain [None]
  - Oral neoplasm [None]
  - Hypoaesthesia oral [None]
  - Neck pain [None]
  - Lip pain [None]

NARRATIVE: CASE EVENT DATE: 20160215
